FAERS Safety Report 5644095-6 (Version None)
Quarter: 2008Q1

REPORT INFORMATION
  Report Type: 
  Country: None (occurrence: None)
  Receive Date: 20080226
  Receipt Date: 20080218
  Transmission Date: 20080703
  Serious: Yes (Other)
  Sender: FDA-Public Use
  Company Number: 2008003612

PATIENT
  Age: 44 Year
  Sex: Male

DRUGS (2)
  1. MINOXIDIL [Suspect]
     Indication: ALOPECIA
     Dosage: 1 ML TWICE DAILY (2 IN 1 D), TOPICAL
     Route: 061
     Dates: start: 20080128, end: 20080201
  2. CETIRIZINE HCL [Suspect]
     Indication: SWELLING
     Dates: start: 20080201

REACTIONS (1)
  - HYPERSENSITIVITY [None]
